FAERS Safety Report 9143706 (Version 1)
Quarter: 2013Q1

REPORT INFORMATION
  Report Type: Spontaneous
  Country: FR (occurrence: FR)
  Receive Date: 20130306
  Receipt Date: 20130306
  Transmission Date: 20140127
  Serious: Yes (Hospitalization)
  Sender: FDA-Public Use
  Company Number: FR-SANOFI-AVENTIS-2013SA019248

PATIENT
  Age: 44 Year
  Sex: Female

DRUGS (1)
  1. TAXOTERE [Suspect]
     Indication: BREAST CANCER
     Route: 042
     Dates: start: 20130125, end: 20130125

REACTIONS (6)
  - Wound necrosis [Recovering/Resolving]
  - Febrile bone marrow aplasia [Recovered/Resolved]
  - Erythema [Recovering/Resolving]
  - Oedema [Recovering/Resolving]
  - Mucosal inflammation [Recovering/Resolving]
  - Exfoliative rash [Recovering/Resolving]
